FAERS Safety Report 10217173 (Version 1)
Quarter: 2014Q2

REPORT INFORMATION
  Report Type: Spontaneous
  Country: GB (occurrence: GB)
  Receive Date: 20140604
  Receipt Date: 20140604
  Transmission Date: 20141212
  Serious: Yes (Other)
  Sender: FDA-Public Use
  Company Number: PHHY2014GB065694

PATIENT
  Sex: 0
  Weight: 84 kg

DRUGS (2)
  1. ENOXAPARIN [Suspect]
     Route: 064
  2. BECLOMETHASONE SANDOZ [Suspect]
     Route: 064

REACTIONS (3)
  - Foetal hypokinesia [Unknown]
  - Foetal exposure during pregnancy [Unknown]
  - Foetal heart rate deceleration abnormality [None]
